FAERS Safety Report 17416864 (Version 1)
Quarter: 2020Q1

REPORT INFORMATION
  Report Type: Spontaneous
  Country: US (occurrence: US)
  Receive Date: 20200214
  Receipt Date: 20200214
  Transmission Date: 20200409
  Serious: Yes (Other)
  Sender: FDA-Public Use
  Company Number: US-AMGEN-USASP2020020619

PATIENT

DRUGS (2)
  1. ARANESP [Suspect]
     Active Substance: DARBEPOETIN ALFA
     Dosage: UNK MICROGRAM/KILOGRAM (INCREASED DOSE)
     Route: 058
  2. ARANESP [Suspect]
     Active Substance: DARBEPOETIN ALFA
     Indication: ANAEMIA
     Dosage: 0.75 MICROGRAM/KILOGRAM, Q2WK
     Route: 058

REACTIONS (5)
  - Iron deficiency [Unknown]
  - Therapeutic product effect incomplete [Unknown]
  - Kidney transplant rejection [Unknown]
  - Drug resistance [Unknown]
  - Adverse event [Unknown]
